FAERS Safety Report 16594660 (Version 3)
Quarter: 2019Q3

REPORT INFORMATION
  Report Type: Spontaneous
  Country: TR (occurrence: TR)
  Receive Date: 20190718
  Receipt Date: 20190725
  Transmission Date: 20191004
  Serious: Yes (Hospitalization)
  Sender: FDA-Public Use
  Company Number: TR-PFIZER INC-K201001550

PATIENT
  Age: 12 Year
  Sex: Male

DRUGS (2)
  1. BENZATHINE BENZYLPENICILLIN [Suspect]
     Active Substance: PENICILLIN G BENZATHINE
     Indication: RHEUMATIC FEVER
     Dosage: UNK
     Route: 030
  2. BENZATHINE BENZYLPENICILLIN [Suspect]
     Active Substance: PENICILLIN G BENZATHINE
     Indication: ANTIBIOTIC PROPHYLAXIS

REACTIONS (8)
  - Embolia cutis medicamentosa [Recovered/Resolved with Sequelae]
  - Skin discolouration [Unknown]
  - Injection site oedema [Recovered/Resolved with Sequelae]
  - Injection site bruising [Recovered/Resolved with Sequelae]
  - Skin plaque [Recovered/Resolved with Sequelae]
  - Gait disturbance [Recovered/Resolved with Sequelae]
  - Injection site haemorrhage [Recovered/Resolved with Sequelae]
  - Injection site pain [Recovered/Resolved with Sequelae]
